FAERS Safety Report 6597718-1 (Version None)
Quarter: 2010Q1

REPORT INFORMATION
  Report Type: 
  Country: None (occurrence: None)
  Receive Date: 20100216
  Receipt Date: 20100208
  Transmission Date: 20100710
  Serious: Yes (Other)
  Sender: FDA-Public Use
  Company Number: 2010SP007534

PATIENT
  Age: 77 Year
  Sex: Male

DRUGS (2)
  1. BETAMETHASONE SODIUM PHOSPHATE [Suspect]
     Indication: INTERVERTEBRAL DISC DISORDER
     Dates: start: 20100126
  2. BIOFENAC /01140001/ [Concomitant]

REACTIONS (3)
  - CEREBROVASCULAR ACCIDENT [None]
  - MENTAL DISORDER [None]
  - TRANSIENT ISCHAEMIC ATTACK [None]
